FAERS Safety Report 4909108-5 (Version None)
Quarter: 2006Q1

REPORT INFORMATION
  Report Type: 
  Country: None (occurrence: None)
  Receive Date: 20060208
  Receipt Date: 20060208
  Transmission Date: 20060701
  Serious: Yes (Hospitalization)
  Sender: FDA-Public Use
  Company Number: None

PATIENT
  Age: 68 Year
  Sex: Male
  Weight: 59.8748 kg

DRUGS (1)
  1. OXCARBAZEPINE [Suspect]
     Indication: CONVULSION
     Dosage: 900 MG BID ORAL
     Route: 048
     Dates: start: 20050717, end: 20051028

REACTIONS (2)
  - HYPONATRAEMIA [None]
  - UNEVALUABLE EVENT [None]
